FAERS Safety Report 10540222 (Version 2)
Quarter: 2014Q4

REPORT INFORMATION
  Report Type: Spontaneous
  Country: CH (occurrence: None)
  Receive Date: 20141022
  Receipt Date: 20141104
  Transmission Date: 20150529
  Serious: Yes (Other)
  Sender: FDA-Public Use
  Company Number: 20140661

PATIENT
  Age: 47 Year
  Sex: Female

DRUGS (2)
  1. DEPO PROVERA (MEDROXYPROGESTERONE ACETATE) [Concomitant]
  2. FERINJECT [Suspect]
     Active Substance: FERRIC CARBOXYMALTOSE
     Indication: IRON DEFICIENCY ANAEMIA
     Dosage: 1000 MG, 1 IN 1 INTRAVENOUS DRIP
     Route: 041
     Dates: start: 20140916, end: 20140916

REACTIONS (2)
  - Pain [None]
  - Angioedema [None]

NARRATIVE: CASE EVENT DATE: 20140916
